FAERS Safety Report 22748082 (Version 2)
Quarter: 2023Q4

REPORT INFORMATION
  Report Type: Spontaneous
  Country: US (occurrence: US)
  Receive Date: 20230725
  Receipt Date: 20231102
  Transmission Date: 20240110
  Serious: Yes (Hospitalization)
  Sender: FDA-Public Use
  Company Number: US-BRISTOL-MYERS SQUIBB COMPANY-2023-104291

PATIENT
  Age: 74 Year
  Sex: Female

DRUGS (1)
  1. POMALYST [Suspect]
     Active Substance: POMALIDOMIDE
     Indication: Plasma cell myeloma refractory
     Dosage: FREQUENCY: ORAL?EVERY OTHER DAY FOR 21 DAYS ON AND 7 OFF
     Route: 048
     Dates: start: 202106

REACTIONS (4)
  - Cardiac disorder [Unknown]
  - Heart rate increased [Unknown]
  - Atrial flutter [Unknown]
  - Off label use [Unknown]

NARRATIVE: CASE EVENT DATE: 20230703
